FAERS Safety Report 16479239 (Version 1)
Quarter: 2019Q2

REPORT INFORMATION
  Report Type: Spontaneous
  Country: US (occurrence: US)
  Receive Date: 20190626
  Receipt Date: 20190626
  Transmission Date: 20190711
  Serious: No
  Sender: FDA-Public Use
  Company Number: US-SAOL THERAPEUTICS-2018SAO01128

PATIENT
  Age: 10 Year
  Sex: Male
  Weight: 40.3 kg

DRUGS (1)
  1. LIORESAL [Suspect]
     Active Substance: BACLOFEN
     Indication: DIPLEGIA
     Dosage: 180.3 ?G, \DAY
     Route: 037
     Dates: start: 20120306

REACTIONS (3)
  - Implant site swelling [Unknown]
  - Implant site discharge [Unknown]
  - Device issue [Unknown]

NARRATIVE: CASE EVENT DATE: 201810
